FAERS Safety Report 12905957 (Version 10)
Quarter: 2018Q3

REPORT INFORMATION
  Report Type: Report from Study
  Country: CN (occurrence: CN)
  Receive Date: 20161103
  Receipt Date: 20180806
  Transmission Date: 20181010
  Serious: Yes (Hospitalization)
  Sender: FDA-Public Use
  Company Number: CN-ROCHE-1844925

PATIENT
  Age: 54 Year
  Sex: Female
  Weight: 85 kg

DRUGS (12)
  1. PLACEBO [Suspect]
     Active Substance: UNSPECIFIED INGREDIENT
     Indication: HER-2 POSITIVE BREAST CANCER
     Dosage: LOADING DOSE
     Route: 042
     Dates: start: 20161012
  2. GLUTAMINE [Concomitant]
     Active Substance: GLUTAMINE
     Dosage: COMPOUND GLUTAMINE GRANULES?PREVENTION OF GASTRIC MUCOSA INJURY
     Route: 065
     Dates: start: 20161014, end: 20161019
  3. AMMONIUM GLYCYRRHIZATE [Concomitant]
     Active Substance: AMMONIUM GLYCYRRHIZATE
     Dosage: PREVENTVE MEDICATION
     Route: 065
     Dates: start: 20160928, end: 20161002
  4. DEXAMETHASONE ACETATE [Concomitant]
     Active Substance: DEXAMETHASONE ACETATE
     Dosage: PREVENTIVE MEDICATION
     Route: 065
     Dates: start: 20161011, end: 20161014
  5. CREATINE PHOSPHATE SODIUM [Concomitant]
     Active Substance: CREATINE
     Dosage: PREVENTION OF HEART INJURY
     Route: 065
     Dates: start: 20161012, end: 20161018
  6. TROPISETRON HYDROCHLORIDE [Concomitant]
     Active Substance: TROPISETRON HYDROCHLORIDE
     Indication: VOMITING
     Dosage: PREVENTIVE MEDICATION
     Route: 065
     Dates: start: 20161012, end: 20161012
  7. LANSOPRAZOLE. [Concomitant]
     Active Substance: LANSOPRAZOLE
     Route: 065
     Dates: start: 20161012, end: 20161014
  8. CIMETIDINE [Concomitant]
     Active Substance: CIMETIDINE
     Dosage: PREVENTIVE MEDICATION
     Route: 065
     Dates: start: 20161012, end: 20161012
  9. DOCETAXEL. [Suspect]
     Active Substance: DOCETAXEL
     Indication: HER-2 POSITIVE BREAST CANCER
     Route: 042
     Dates: start: 20161012
  10. SODIUM CHLORIDE. [Concomitant]
     Active Substance: SODIUM CHLORIDE
     Indication: VOMITING
     Dosage: PREVENT VOMIT
     Route: 065
     Dates: start: 20161012, end: 20161014
  11. AMMONIUM GLYCYRRHIZATE [Concomitant]
     Active Substance: AMMONIUM GLYCYRRHIZATE
     Dosage: PREVENTION OF LIVER INJURY
     Route: 065
     Dates: start: 20161012, end: 20161015
  12. TRASTUZUMAB. [Suspect]
     Active Substance: TRASTUZUMAB
     Indication: HER-2 POSITIVE BREAST CANCER
     Dosage: LOADING DOSE
     Route: 042
     Dates: start: 20161012

REACTIONS (1)
  - Alanine aminotransferase increased [Recovered/Resolved]

NARRATIVE: CASE EVENT DATE: 20161018
